FAERS Safety Report 15631316 (Version 2)
Quarter: 2019Q1

REPORT INFORMATION
  Report Type: Spontaneous
  Country: FR (occurrence: FR)
  Receive Date: 20181119
  Receipt Date: 20190320
  Transmission Date: 20190417
  Serious: Yes (Hospitalization, Other)
  Sender: FDA-Public Use
  Company Number: FR-AUROBINDO-AUR-APL-2018-055534

PATIENT

DRUGS (13)
  1. SIMVASTATIN. [Concomitant]
     Active Substance: SIMVASTATIN
     Indication: HYPERCHOLESTEROLAEMIA
     Dosage: UNK
     Route: 048
  2. AMLODIPINE [Concomitant]
     Active Substance: AMLODIPINE BESYLATE
     Indication: HYPERTENSION
     Dosage: UNK
     Route: 048
  3. MYOLASTAN [Suspect]
     Active Substance: TETRAZEPAM
     Indication: SCIATICA
     Dosage: 50 MG,UNK
     Route: 048
     Dates: start: 20111227, end: 20120109
  4. BALSOFUMINE SIMPLE [Suspect]
     Active Substance: HERBALS
     Indication: PRODUCT USED FOR UNKNOWN INDICATION
     Dosage: UNK
     Route: 048
     Dates: start: 20120102, end: 20120109
  5. TOPALGIC                           /00599202/ [Suspect]
     Active Substance: TRAMADOL HYDROCHLORIDE
     Dosage: 200 MILLIGRAM, ONCE A DAY
     Route: 048
     Dates: start: 201201, end: 201201
  6. BISOPROLOL/HYDROCHLOROTHIAZIDE ARROW [Concomitant]
     Indication: HYPERTENSION
     Dosage: UNK
     Route: 048
  7. OMEPRAZOLE. [Suspect]
     Active Substance: OMEPRAZOLE
     Indication: PRODUCT USED FOR UNKNOWN INDICATION
     Dosage: UNK
     Route: 048
     Dates: start: 20111227, end: 20120109
  8. DOMPERIDONE [Suspect]
     Active Substance: DOMPERIDONE
     Indication: PRODUCT USED FOR UNKNOWN INDICATION
     Dosage: 4 DOSAGE FORM, ONCE A DAY
     Route: 048
     Dates: start: 20120102, end: 20120109
  9. DICLOFENAC SODIUM. [Suspect]
     Active Substance: DICLOFENAC SODIUM
     Dosage: 100 MILLIGRAM, ONCE A DAY
     Route: 048
     Dates: start: 20111227
  10. PARACETAMOL [Suspect]
     Active Substance: ACETAMINOPHEN
     Indication: SCIATICA
     Dosage: 4 GRAM, ONCE A DAY
     Route: 048
     Dates: start: 20111227, end: 201201
  11. DICLOFENAC SODIUM. [Suspect]
     Active Substance: DICLOFENAC SODIUM
     Indication: SCIATICA
     Dosage: 150 MILLIGRAM, ONCE A DAY
     Route: 048
     Dates: start: 20120109
  12. TOPALGIC                           /00599202/ [Suspect]
     Active Substance: TRAMADOL HYDROCHLORIDE
     Indication: SCIATICA
     Dosage: 100 MILLIGRAM, DAILY
     Route: 048
     Dates: start: 20111227
  13. ENALAPRIL [Concomitant]
     Active Substance: ENALAPRIL
     Indication: HYPERTENSION
     Dosage: UNK
     Route: 048

REACTIONS (5)
  - Rash erythematous [Recovering/Resolving]
  - Skin lesion [Recovering/Resolving]
  - Rash maculo-papular [Recovering/Resolving]
  - Stevens-Johnson syndrome [Recovered/Resolved]
  - Oral mucosa erosion [Recovering/Resolving]

NARRATIVE: CASE EVENT DATE: 20120108
